FAERS Safety Report 9408778 (Version 2)
Quarter: 2013Q3

REPORT INFORMATION
  Report Type: Report from Study
  Country: ES (occurrence: ES)
  Receive Date: 20130719
  Receipt Date: 20130724
  Transmission Date: 20140515
  Serious: Yes (Death)
  Sender: FDA-Public Use
  Company Number: ES-ROCHE-1249966

PATIENT
  Sex: Female
  Weight: 88 kg

DRUGS (2)
  1. PERTUZUMAB [Suspect]
     Indication: PRODUCT USED FOR UNKNOWN INDICATION
     Dosage: DURATION OF TREATMENT: 5 CYCLES,
     Route: 065
     Dates: start: 20130214, end: 20130523
  2. PERTUZUMAB [Suspect]
     Dosage: DURATION OF TREATMENT: 5 CYCLES,
     Route: 065

REACTIONS (1)
  - Nervous system disorder [Fatal]
